FAERS Safety Report 25451268 (Version 1)
Quarter: 2025Q2

REPORT INFORMATION
  Report Type: Spontaneous
  Country: US (occurrence: US)
  Receive Date: 20250618
  Receipt Date: 20250618
  Transmission Date: 20250716
  Serious: No
  Sender: INTERCEPT PHARMACEUTICALS
  Company Number: US-INTERCEPT-PM2025001111

PATIENT
  Sex: Female

DRUGS (11)
  1. OCALIVA [Suspect]
     Active Substance: OBETICHOLIC ACID
     Indication: Primary biliary cholangitis
     Dosage: 5 MILLIGRAM, QD
     Route: 048
     Dates: start: 20231022, end: 202311
  2. OCALIVA [Suspect]
     Active Substance: OBETICHOLIC ACID
     Dosage: 5 MILLIGRAM, QD
     Route: 048
     Dates: start: 2023
  3. OCALIVA [Suspect]
     Active Substance: OBETICHOLIC ACID
     Dosage: 10 MILLIGRAM, QD
     Route: 048
     Dates: end: 2025
  4. URSODIOL [Concomitant]
     Active Substance: URSODIOL
     Indication: Primary biliary cholangitis
     Dosage: 250 MILLIGRAM, BID
     Route: 048
  5. CEVIMELINE [Concomitant]
     Active Substance: CEVIMELINE
     Dosage: 30 MILLIGRAM, TID
     Route: 048
  6. HYDROXYCHLOROQUINE [Concomitant]
     Active Substance: HYDROXYCHLOROQUINE
  7. LISINOPRIL [Concomitant]
     Active Substance: LISINOPRIL
  8. NIFEDIPINE [Concomitant]
     Active Substance: NIFEDIPINE
  9. LIDOCAINE [Concomitant]
     Active Substance: LIDOCAINE
  10. PROLIA [Concomitant]
     Active Substance: DENOSUMAB
  11. MIRALAX [Concomitant]
     Active Substance: POLYETHYLENE GLYCOL 3350

REACTIONS (2)
  - Liver disorder [Not Recovered/Not Resolved]
  - Therapy cessation [Not Recovered/Not Resolved]

NARRATIVE: CASE EVENT DATE: 20250101
